FAERS Safety Report 18224392 (Version 2)
Quarter: 2021Q2

REPORT INFORMATION
  Report Type: Report from Study
  Country: US (occurrence: US)
  Receive Date: 20200902
  Receipt Date: 20210423
  Transmission Date: 20210717
  Serious: Yes (Death, Hospitalization, Other)
  Sender: FDA-Public Use
  Company Number: US-SEATTLE GENETICS-2020SGN03549

PATIENT
  Sex: Female

DRUGS (12)
  1. IRON                               /00023503/ [Concomitant]
     Active Substance: IRON
  2. ONDANSETRON HCL [Concomitant]
     Active Substance: ONDANSETRON HYDROCHLORIDE
  3. KANJINTI [Concomitant]
     Active Substance: TRASTUZUMAB-ANNS
  4. GARLIC                             /01570501/ [Concomitant]
     Active Substance: GARLIC
  5. PROCRIT [Concomitant]
     Active Substance: ERYTHROPOIETIN
  6. GRAPE SEED                         /01364601/ [Concomitant]
  7. MULTIVITAMIN                       /00097801/ [Concomitant]
     Active Substance: VITAMINS
  8. TUCATINIB [Suspect]
     Active Substance: TUCATINIB
     Indication: BREAST CANCER METASTATIC
     Dosage: 300 MG, BID
  9. VITAMIN B12 [Concomitant]
     Active Substance: CYANOCOBALAMIN
  10. LETROZOLE. [Concomitant]
     Active Substance: LETROZOLE
  11. XELODA [Concomitant]
     Active Substance: CAPECITABINE
  12. VITAMIN C [Concomitant]
     Active Substance: ASCORBIC ACID

REACTIONS (9)
  - Acute myocardial infarction [Unknown]
  - Bone pain [Unknown]
  - Failure to thrive [Fatal]
  - Breast cancer metastatic [Fatal]
  - Diarrhoea [Unknown]
  - Pneumonia [Unknown]
  - Fatigue [Unknown]
  - Decreased appetite [Unknown]
  - Oral pain [Unknown]
